FAERS Safety Report 16650344 (Version 1)
Quarter: 2019Q3

REPORT INFORMATION
  Report Type: Spontaneous
  Country: JP (occurrence: JP)
  Receive Date: 20190731
  Receipt Date: 20190731
  Transmission Date: 20191004
  Serious: Yes (Other)
  Sender: FDA-Public Use
  Company Number: JP-TEVA-2019-JP-004645J

PATIENT
  Age: 47 Year
  Sex: Female

DRUGS (13)
  1. PEROSPIRONE HYDROCHLORIDE HYDRATE [Suspect]
     Active Substance: PEROSPIRONE HYDROCHLORIDE HYDRATE
     Dosage: 12 MILLIGRAM DAILY;
     Route: 048
     Dates: start: 2017
  2. ATOMOXETINE HYDROCHLORIDE. [Suspect]
     Active Substance: ATOMOXETINE HYDROCHLORIDE
     Dosage: 80 MILLIGRAM DAILY;
     Route: 048
     Dates: start: 2017
  3. TAKEPRON CAPSULES 15 [Suspect]
     Active Substance: LANSOPRAZOLE
     Indication: PRODUCT USED FOR UNKNOWN INDICATION
     Dosage: 15 MILLIGRAM DAILY;
     Route: 048
  4. HIBERNA [Suspect]
     Active Substance: PROMETHAZINE HYDROCHLORIDE
     Dosage: 15 MILLIGRAM DAILY;
     Route: 048
     Dates: start: 2017
  5. ZOPICLONE [Suspect]
     Active Substance: ZOPICLONE
     Dosage: 7.5  DAILY;
     Route: 048
     Dates: start: 2017
  6. CARBAMAZEPINE. [Suspect]
     Active Substance: CARBAMAZEPINE
     Dosage: 600 MILLIGRAM DAILY;
     Route: 048
     Dates: start: 2017
  7. QUETIAPINE TABLET 200MG TEVA [Suspect]
     Active Substance: QUETIAPINE FUMARATE
     Indication: PRODUCT USED FOR UNKNOWN INDICATION
     Dosage: 100 MILLIGRAM DAILY;
     Route: 048
  8. ABILIFY [Suspect]
     Active Substance: ARIPIPRAZOLE
     Indication: SCHIZOPHRENIA
     Dosage: 400 MILLIGRAM DAILY;
     Route: 030
     Dates: start: 2017
  9. RITALIN [Suspect]
     Active Substance: METHYLPHENIDATE HYDROCHLORIDE
     Dosage: 20 MILLIGRAM DAILY;
     Route: 048
     Dates: start: 2017
  10. SYCREST [Suspect]
     Active Substance: ASENAPINE MALEATE
     Dosage: 20 MILLIGRAM DAILY;
     Route: 048
     Dates: start: 2018
  11. FLUNITRAZEPAM [Suspect]
     Active Substance: FLUNITRAZEPAM
     Dosage: 1 MILLIGRAM DAILY;
     Route: 048
     Dates: start: 2017
  12. TRANEXAMIC ACID. [Suspect]
     Active Substance: TRANEXAMIC ACID
     Dosage: 750 MILLIGRAM DAILY;
     Route: 048
     Dates: start: 2018
  13. NEULEPTIL [Suspect]
     Active Substance: PERICIAZINE
     Dosage: 15 MILLIGRAM DAILY;
     Route: 048
     Dates: start: 2017

REACTIONS (1)
  - Shock [Recovered/Resolved]

NARRATIVE: CASE EVENT DATE: 20190628
